FAERS Safety Report 6076241-7 (Version None)
Quarter: 2009Q1

REPORT INFORMATION
  Report Type: 
  Country: None (occurrence: None)
  Receive Date: 20090212
  Receipt Date: 20090202
  Transmission Date: 20090719
  Serious: Yes (Hospitalization)
  Sender: FDA-Public Use
  Company Number: FR-GILEAD-2009-0020106

PATIENT
  Age: 32 Year
  Sex: Male

DRUGS (6)
  1. TRUVADA [Suspect]
     Dates: start: 20080707, end: 20081224
  2. ISENTRESS [Concomitant]
     Dates: start: 20080707
  3. ANSATIPINE [Concomitant]
     Indication: MYCOBACTERIUM AVIUM COMPLEX INFECTION
     Dates: start: 20080703
  4. MYAMBUTOL [Concomitant]
     Indication: MYCOBACTERIUM AVIUM COMPLEX INFECTION
     Dates: start: 20080703
  5. ZECLAR [Concomitant]
     Indication: MYCOBACTERIUM AVIUM COMPLEX INFECTION
     Dates: start: 20080703
  6. TRIFLUCAN [Concomitant]
     Indication: OESOPHAGEAL CANDIDIASIS

REACTIONS (3)
  - FANCONI SYNDROME ACQUIRED [None]
  - OESOPHAGEAL CANDIDIASIS [None]
  - RENAL FAILURE ACUTE [None]
